FAERS Safety Report 11621499 (Version 2)
Quarter: 2015Q4

REPORT INFORMATION
  Report Type: Spontaneous
  Country: GB (occurrence: GB)
  Receive Date: 20151013
  Receipt Date: 20151222
  Transmission Date: 20160304
  Serious: Yes (Other)
  Sender: FDA-Public Use
  Company Number: GB-JNJFOC-20151001999

PATIENT
  Sex: Male

DRUGS (2)
  1. REGAINE EXTRA STRENGTH-MENS (5%) [Suspect]
     Active Substance: MINOXIDIL
     Indication: ALOPECIA
     Dosage: FOR 5 YEARS.
     Route: 065
     Dates: start: 2010
  2. REGAINE EXTRA STRENGTH-MENS (5%) [Suspect]
     Active Substance: MINOXIDIL
     Route: 065

REACTIONS (2)
  - Inappropriate schedule of drug administration [Unknown]
  - Deafness [Not Recovered/Not Resolved]
